FAERS Safety Report 5952378-5 (Version None)
Quarter: 2008Q4

REPORT INFORMATION
  Report Type: 
  Country: None (occurrence: None)
  Receive Date: 20081113
  Receipt Date: 20081102
  Transmission Date: 20090506
  Serious: Yes (Life-Threatening)
  Sender: FDA-Public Use
  Company Number: QA-BAUSCH-2008BL004699

PATIENT
  Age: 30 Year
  Sex: Female

DRUGS (6)
  1. ATROPINE [Suspect]
     Route: 042
  2. METHERGINE [Suspect]
     Route: 030
  3. BUPIVACAINE [Concomitant]
  4. FENTANYL [Concomitant]
  5. SALINE MIXTURE [Concomitant]
  6. ONDANSETRON [Concomitant]
     Route: 042

REACTIONS (7)
  - BLOOD PRESSURE INCREASED [None]
  - CHEST PAIN [None]
  - HEADACHE [None]
  - HEART RATE INCREASED [None]
  - NAUSEA [None]
  - SINUS BRADYCARDIA [None]
  - VOMITING [None]
